FAERS Safety Report 7177424-5 (Version None)
Quarter: 2010Q4

REPORT INFORMATION
  Report Type: 
  Country: None (occurrence: None)
  Receive Date: 20101220
  Receipt Date: 20101209
  Transmission Date: 20110411
  Serious: Yes (Hospitalization)
  Sender: FDA-Public Use
  Company Number: PHHO2010US18748

PATIENT
  Sex: Male
  Weight: 106.2 kg

DRUGS (2)
  1. CERTICAN [Suspect]
     Indication: LIVER TRANSPLANT
     Dosage: 2 MG, BID
     Route: 048
     Dates: start: 20100216, end: 20101122
  2. TACROLIMUS [Suspect]
     Indication: LIVER TRANSPLANT
     Route: 048

REACTIONS (6)
  - ARTERIOSCLEROSIS [None]
  - CARDIOMEGALY [None]
  - CORONARY ARTERY BYPASS [None]
  - CORONARY ARTERY DISEASE [None]
  - CORONARY ARTERY STENOSIS [None]
  - MYOCARDIAL ISCHAEMIA [None]
